FAERS Safety Report 23918962 (Version 1)
Quarter: 2024Q2

REPORT INFORMATION
  Report Type: Spontaneous
  Country: US (occurrence: US)
  Receive Date: 20240530
  Receipt Date: 20240530
  Transmission Date: 20240716
  Serious: Yes (Other)
  Sender: FDA-Public Use
  Company Number: US-JNJFOC-20240571409

PATIENT
  Sex: Male

DRUGS (18)
  1. DARZALEX [Suspect]
     Active Substance: DARATUMUMAB
     Indication: Product used for unknown indication
     Route: 065
     Dates: start: 20221003
  2. VENCLEXTA [Concomitant]
     Active Substance: VENETOCLAX
  3. ZOVIRAX [Concomitant]
     Active Substance: ACYCLOVIR
  4. NORVASC [Concomitant]
     Active Substance: AMLODIPINE BESYLATE
  5. HYGROTON [Concomitant]
     Active Substance: CHLORTHALIDONE
  6. DECADRON [Concomitant]
     Active Substance: DEXAMETHASONE
  7. HYDRODIURIL [Concomitant]
     Active Substance: HYDROCHLOROTHIAZIDE
  8. SYNTHROID [Concomitant]
     Active Substance: LEVOTHYROXINE SODIUM
  9. GLUCOPHAGE XR [Concomitant]
     Active Substance: METFORMIN HYDROCHLORIDE
  10. METOPROLOL SUCCINATE [Concomitant]
     Active Substance: METOPROLOL SUCCINATE
  11. ZOFRAN [Concomitant]
     Active Substance: ONDANSETRON HYDROCHLORIDE
  12. OMEPRAZOLE [Concomitant]
     Active Substance: DONEPEZIL HYDROCHLORIDE\OMEPRAZOLE\OMEPRAZOLE MAGNESIUM
  13. KLOR-CON/EF [Concomitant]
     Active Substance: POTASSIUM BICARBONATE
  14. ALDACTONE [Concomitant]
     Active Substance: SPIRONOLACTONE
  15. ZANAFLEX [Concomitant]
     Active Substance: TIZANIDINE HYDROCHLORIDE
  16. DESYREL [Concomitant]
     Active Substance: TRAZODONE HYDROCHLORIDE
  17. FLONASE NIGHTTIME ALLERGY RELIEF [Concomitant]
     Active Substance: TRIPROLIDINE HYDROCHLORIDE
  18. ROBAXIN [Concomitant]
     Active Substance: METHOCARBAMOL

REACTIONS (1)
  - Plasma cell myeloma [Unknown]
